FAERS Safety Report 11790767 (Version 2)
Quarter: 2015Q4

REPORT INFORMATION
  Report Type: Spontaneous
  Country: US (occurrence: US)
  Receive Date: 20151201
  Receipt Date: 20151214
  Transmission Date: 20160305
  Serious: No
  Sender: FDA-Public Use
  Company Number: US-BAYER-2015-480043

PATIENT
  Age: 76 Year
  Sex: Female
  Weight: 52.15 kg

DRUGS (3)
  1. METOPROLOL [Concomitant]
     Active Substance: METOPROLOL
  2. METAMUCIL [Concomitant]
     Active Substance: PLANTAGO SEED
  3. MIRALAX [Suspect]
     Active Substance: POLYETHYLENE GLYCOL 3350
     Indication: HAEMORRHOIDS
     Dosage: 1 DF, QD
     Route: 048
     Dates: start: 20151121

REACTIONS (3)
  - Off label use [None]
  - Product use issue [None]
  - Intercepted drug prescribing error [None]

NARRATIVE: CASE EVENT DATE: 20151121
